FAERS Safety Report 17600531 (Version 2)
Quarter: 2020Q2

REPORT INFORMATION
  Report Type: Spontaneous
  Country: NL (occurrence: NL)
  Receive Date: 20200330
  Receipt Date: 20200521
  Transmission Date: 20200713
  Serious: Yes (Other)
  Sender: FDA-Public Use
  Company Number: NL-TOLMAR, INC.-20NL020810

PATIENT
  Age: 79 Year
  Sex: Male

DRUGS (3)
  1. ELIGARD [Suspect]
     Active Substance: LEUPROLIDE ACETATE
     Dosage: 22.5 MG, Q 3 MONTH
     Route: 058
     Dates: start: 20200323
  2. ELIGARD [Suspect]
     Active Substance: LEUPROLIDE ACETATE
     Indication: PROSTATE CANCER
     Dosage: 22.5 MG, Q 3 MONTH
     Route: 058
     Dates: start: 20191223
  3. ELIGARD [Suspect]
     Active Substance: LEUPROLIDE ACETATE
     Dosage: 22.5 MG, Q 3 MONTH
     Route: 058
     Dates: start: 20200318

REACTIONS (10)
  - Heart rate decreased [Recovered/Resolved]
  - Hypotension [Unknown]
  - Pruritus [Recovering/Resolving]
  - Device leakage [None]
  - Product administration error [None]
  - Presyncope [Recovered/Resolved]
  - Syringe issue [None]
  - Rash [Recovered/Resolved]
  - Wrong technique in product usage process [None]
  - Extra dose administered [None]

NARRATIVE: CASE EVENT DATE: 201912
